FAERS Safety Report 13180679 (Version 3)
Quarter: 2017Q2

REPORT INFORMATION
  Report Type: Spontaneous
  Country: US (occurrence: US)
  Receive Date: 20170202
  Receipt Date: 20170425
  Transmission Date: 20170830
  Serious: Yes (Other)
  Sender: FDA-Public Use
  Company Number: US-TEVA-734876USA

PATIENT
  Sex: Female

DRUGS (1)
  1. NUVIGIL [Suspect]
     Active Substance: ARMODAFINIL
     Indication: NARCOLEPSY
     Route: 065

REACTIONS (4)
  - Product substitution issue [Unknown]
  - Adverse event [Recovered/Resolved]
  - Motor dysfunction [Not Recovered/Not Resolved]
  - Cataplexy [Not Recovered/Not Resolved]
